FAERS Safety Report 20066686 (Version 2)
Quarter: 2025Q4

REPORT INFORMATION
  Report Type: Spontaneous
  Country: EU (occurrence: EU)
  Receive Date: 20211115
  Receipt Date: 20251021
  Transmission Date: 20260119
  Serious: Yes (Life-Threatening, Other)
  Sender: AUROBINDO
  Company Number: EU-STADA-235461

PATIENT
  Age: 52 Year
  Sex: Female

DRUGS (1)
  1. IBUPROFEN [Suspect]
     Active Substance: IBUPROFEN
     Indication: Product used for unknown indication
     Dosage: UNK
     Route: 065

REACTIONS (2)
  - Gastrointestinal ulcer haemorrhage [Recovered/Resolved]
  - Stress [Unknown]

NARRATIVE: CASE EVENT DATE: 20200901
